FAERS Safety Report 9653205 (Version 1)
Quarter: 2013Q4

REPORT INFORMATION
  Report Type: Spontaneous
  Country: GB (occurrence: GB)
  Receive Date: 20131029
  Receipt Date: 20131029
  Transmission Date: 20140711
  Serious: Yes (Other)
  Sender: FDA-Public Use
  Company Number: GB-PFIZER INC-2013308202

PATIENT
  Age: 51 Year
  Sex: 0

DRUGS (1)
  1. INSPRA [Suspect]
     Dosage: 12.5 MG, UNK

REACTIONS (1)
  - Haemorrhage [Unknown]
